FAERS Safety Report 10158986 (Version 1)
Quarter: 2014Q2

REPORT INFORMATION
  Report Type: Spontaneous
  Country: US (occurrence: US)
  Receive Date: 20140508
  Receipt Date: 20140508
  Transmission Date: 20141212
  Serious: No
  Sender: FDA-Public Use
  Company Number: US-BIOGENIDEC-2014BI039993

PATIENT
  Age: 54 Year
  Sex: Male

DRUGS (10)
  1. TECFIDERA [Suspect]
     Indication: MULTIPLE SCLEROSIS
     Route: 048
     Dates: start: 201403, end: 201403
  2. TECFIDERA [Suspect]
     Indication: MULTIPLE SCLEROSIS
     Route: 048
     Dates: start: 201403
  3. COREG [Concomitant]
     Indication: PRODUCT USED FOR UNKNOWN INDICATION
  4. STROVITE VITAMIN D [Concomitant]
     Indication: PRODUCT USED FOR UNKNOWN INDICATION
  5. OMEGA 3-6-9 [Concomitant]
     Indication: PRODUCT USED FOR UNKNOWN INDICATION
  6. NUVIGIL [Concomitant]
     Indication: PRODUCT USED FOR UNKNOWN INDICATION
  7. AMRIX [Concomitant]
     Indication: PRODUCT USED FOR UNKNOWN INDICATION
  8. NAPROXEN [Concomitant]
     Indication: PRODUCT USED FOR UNKNOWN INDICATION
  9. PLAVIX [Concomitant]
     Indication: PRODUCT USED FOR UNKNOWN INDICATION
  10. TRIBENZOR [Concomitant]
     Indication: PRODUCT USED FOR UNKNOWN INDICATION

REACTIONS (2)
  - Sunburn [Not Recovered/Not Resolved]
  - Prescribed underdose [Not Recovered/Not Resolved]
